FAERS Safety Report 7764718-5 (Version None)
Quarter: 2011Q3

REPORT INFORMATION
  Report Type: 
  Country: None (occurrence: None)
  Receive Date: 20110916
  Receipt Date: 20110906
  Transmission Date: 20111222
  Serious: Yes (Hospitalization)
  Sender: FDA-Public Use
  Company Number: TCI2011A03782

PATIENT
  Age: 55 Year
  Sex: Male

DRUGS (2)
  1. AVAPRO [Concomitant]
  2. ACTOS [Suspect]
     Indication: TYPE 2 DIABETES MELLITUS
     Dosage: 15 MG (15 MG, 1 IN 1 D)
     Route: 048
     Dates: start: 20080924

REACTIONS (4)
  - OCCULT BLOOD POSITIVE [None]
  - COLONIC STENOSIS [None]
  - ADENOCARCINOMA [None]
  - LARGE INTESTINE CARCINOMA [None]
